FAERS Safety Report 12302316 (Version 1)
Quarter: 2016Q2

REPORT INFORMATION
  Report Type: Spontaneous
  Country: US (occurrence: US)
  Receive Date: 20160425
  Receipt Date: 20160425
  Transmission Date: 20160815
  Serious: No
  Sender: FDA-Public Use
  Company Number: US-GLAXOSMITHKLINE-US2016053814

PATIENT
  Age: 73 Year
  Sex: Male

DRUGS (2)
  1. VOLTAREN [Suspect]
     Active Substance: DICLOFENAC SODIUM
     Indication: ARTHRALGIA
     Dosage: UNK UNK, U
  2. VOLTAREN [Suspect]
     Active Substance: DICLOFENAC SODIUM
     Indication: SCAR
     Dosage: UNK UNK, U
     Route: 061

REACTIONS (4)
  - Product use issue [Unknown]
  - Drug prescribing error [Unknown]
  - Drug administered at inappropriate site [Unknown]
  - Gastrointestinal disorder [Unknown]
